FAERS Safety Report 6153861-2 (Version None)
Quarter: 2009Q2

REPORT INFORMATION
  Report Type: 
  Country: None (occurrence: None)
  Receive Date: 20090414
  Receipt Date: 20090402
  Transmission Date: 20091009
  Serious: Yes (Other)
  Sender: FDA-Public Use
  Company Number: TH-JNJFOC-20090302445

PATIENT
  Age: 59 Year
  Sex: Female
  Weight: 69 kg

DRUGS (3)
  1. REMICADE [Suspect]
     Route: 042
  2. REMICADE [Suspect]
     Indication: PSORIASIS
     Route: 042
  3. REMICADE [Suspect]
     Indication: PSORIATIC ARTHROPATHY
     Route: 042

REACTIONS (2)
  - ANGIOEDEMA [None]
  - PSORIASIS [None]
